FAERS Safety Report 5052039-3 (Version None)
Quarter: 2006Q3

REPORT INFORMATION
  Report Type: 
  Country: None (occurrence: None)
  Receive Date: 20060711
  Receipt Date: 20060626
  Transmission Date: 20061208
  Serious: Yes (Hospitalization)
  Sender: FDA-Public Use
  Company Number: T06-SWI-02397-01

PATIENT
  Age: 22 Year
  Sex: Male

DRUGS (3)
  1. ESCITALOPRAM OXALATE [Suspect]
     Indication: DEPRESSED MOOD
     Dosage: 10 MG QD; PO
     Route: 048
     Dates: start: 20040101
  2. SEROQUEL [Suspect]
     Indication: SCHIZOPHRENIA
     Dosage: 600 MG QD; PO
     Route: 048
     Dates: start: 20060101
  3. TEGRETOL [Suspect]
     Indication: EPILEPSY
     Dosage: 400 MG QD; PO
     Route: 048
     Dates: start: 20060101

REACTIONS (2)
  - BLOOD SODIUM INCREASED [None]
  - GRAND MAL CONVULSION [None]
